FAERS Safety Report 10228256 (Version 1)
Quarter: 2014Q2

REPORT INFORMATION
  Report Type: Spontaneous
  Country: US (occurrence: US)
  Receive Date: 20140610
  Receipt Date: 20140610
  Transmission Date: 20141212
  Serious: Yes (Life-Threatening, Other)
  Sender: FDA-Public Use
  Company Number: US-JNJFOC-20140518708

PATIENT
  Sex: Female

DRUGS (5)
  1. DOXORUBICIN HYDROCHLORIDE [Suspect]
     Indication: BREAST CANCER
     Dosage: FOR 15 WEEKS
     Route: 042
  2. CYCLOPHOSPHAMIDE [Suspect]
     Indication: BREAST CANCER
     Dosage: FOR 15 WEEKS
     Route: 065
  3. PACLITAXEL [Suspect]
     Indication: BREAST CANCER
     Route: 065
  4. FILGRASTIM [Concomitant]
     Indication: BREAST CANCER
     Dosage: STARTED 24 HOURS AFTER CHEMOTHERAPY INJECTION
     Route: 058
  5. PEGFILGRASTIM [Concomitant]
     Indication: BREAST CANCER
     Dosage: STARTED 24 HOURS AFTER CHEMOTHERAPY INJECTION
     Route: 058

REACTIONS (2)
  - Haematotoxicity [Unknown]
  - Gastrointestinal toxicity [Unknown]
